FAERS Safety Report 11486136 (Version 1)
Quarter: 2015Q3

REPORT INFORMATION
  Report Type: Spontaneous
  Country: CH (occurrence: CH)
  Receive Date: 20150910
  Receipt Date: 20150910
  Transmission Date: 20151125
  Serious: Yes (Life-Threatening, Hospitalization, Other)
  Sender: FDA-Public Use
  Company Number: CH-AMGEN-CHESP2015092680

PATIENT
  Age: 45 Year
  Sex: Female

DRUGS (2)
  1. ENBREL [Suspect]
     Active Substance: ETANERCEPT
     Indication: PRODUCT USED FOR UNKNOWN INDICATION
     Dosage: 1 DF WEEKLY
     Route: 030
     Dates: start: 20150225, end: 20150308
  2. DIAPHIN [Suspect]
     Active Substance: DIACETYLMORPHINE HYDROCHLORIDE
     Indication: DRUG DEPENDENCE
     Dosage: 1 DF 1X/DAY
     Route: 042
     Dates: start: 20150214, end: 20150308

REACTIONS (6)
  - Disseminated intravascular coagulation [Recovered/Resolved]
  - Application site thrombosis [Recovered/Resolved]
  - Gangrene [Unknown]
  - Wound sepsis [Recovered/Resolved]
  - Compartment syndrome [Recovered/Resolved]
  - Product use issue [Recovered/Resolved]

NARRATIVE: CASE EVENT DATE: 20150225
